FAERS Safety Report 18329237 (Version 1)
Quarter: 2020Q3

REPORT INFORMATION
  Report Type: Spontaneous
  Country: US (occurrence: US)
  Receive Date: 20200929
  Receipt Date: 20200929
  Transmission Date: 20201103
  Serious: Yes (Hospitalization)
  Sender: FDA-Public Use
  Company Number: None

PATIENT
  Age: 55 Year
  Sex: Female
  Weight: 58.8 kg

DRUGS (1)
  1. FAMOTIDINE. [Suspect]
     Active Substance: FAMOTIDINE

REACTIONS (7)
  - Aggression [None]
  - Myocardial necrosis marker increased [None]
  - Agitation [None]
  - Mental status changes [None]
  - Unresponsive to stimuli [None]
  - Blood pressure increased [None]
  - Metabolic encephalopathy [None]

NARRATIVE: CASE EVENT DATE: 20200912
